FAERS Safety Report 10157857 (Version 1)
Quarter: 2014Q2

REPORT INFORMATION
  Report Type: Spontaneous
  Country: US (occurrence: US)
  Receive Date: 20140507
  Receipt Date: 20140507
  Transmission Date: 20141212
  Serious: No
  Sender: FDA-Public Use
  Company Number: PHEH2014US008798

PATIENT
  Sex: Male

DRUGS (1)
  1. TASIGNA [Suspect]
     Dosage: 2 DF, BID

REACTIONS (2)
  - Wrong technique in drug usage process [Unknown]
  - Dysphagia [Unknown]
